FAERS Safety Report 7590880-3 (Version None)
Quarter: 2011Q3

REPORT INFORMATION
  Report Type: 
  Country: None (occurrence: None)
  Receive Date: 20110705
  Receipt Date: 20110623
  Transmission Date: 20111222
  Serious: Yes (Other)
  Sender: FDA-Public Use
  Company Number: PHHY2011US34550

PATIENT
  Sex: Female

DRUGS (1)
  1. EXJADE [Suspect]
     Indication: BREAST CANCER
     Dosage: 1500 MG, QD
     Route: 048

REACTIONS (3)
  - LIVER INJURY [None]
  - MULTI-ORGAN DISORDER [None]
  - BLOOD IRON ABNORMAL [None]
